FAERS Safety Report 8810733 (Version 2)
Quarter: 2012Q4

REPORT INFORMATION
  Report Type: Spontaneous
  Country: CH (occurrence: None)
  Receive Date: 20120920
  Receipt Date: 20121009
  Transmission Date: 20130627
  Serious: Yes (Other)
  Sender: FDA-Public Use
  Company Number: 20120573

PATIENT
  Age: 72 Year
  Sex: Female

DRUGS (4)
  1. VENOFER [Suspect]
     Indication: ANEMIA
     Dosage: 100 mg in 200 ml NSover 10 min Intravenous
     Dates: start: 20020821, end: 20120821
  2. ARANESP (DARBEPOETIN ALFA) [Concomitant]
  3. FEDIRALOC [Concomitant]
  4. NOVOMIX [Concomitant]

REACTIONS (4)
  - Nausea [None]
  - Blood pressure decreased [None]
  - Malaise [None]
  - Visual impairment [None]
